FAERS Safety Report 6111583-8 (Version None)
Quarter: 2009Q1

REPORT INFORMATION
  Report Type: 
  Country: None (occurrence: None)
  Receive Date: 20090311
  Receipt Date: 20090225
  Transmission Date: 20090719
  Serious: Yes (Death, Other)
  Sender: FDA-Public Use
  Company Number: US-AVENTIS-200911537US

PATIENT
  Age: 74 Year
  Sex: Male

DRUGS (2)
  1. TAXOTERE [Suspect]
     Indication: NON-SMALL CELL LUNG CANCER
     Dosage: DOSE: UNK
     Route: 042
     Dates: start: 20090129
  2. TARCEVA                            /01611401/ [Suspect]
     Indication: NON-SMALL CELL LUNG CANCER
     Dosage: DOSE: UNK
     Dates: start: 20090101, end: 20090206

REACTIONS (7)
  - CARDIAC ARREST [None]
  - DIARRHOEA [None]
  - FALL [None]
  - GASTROINTESTINAL DISORDER [None]
  - RENAL FAILURE [None]
  - VISUAL IMPAIRMENT [None]
  - VOMITING [None]
